FAERS Safety Report 10199746 (Version 1)
Quarter: 2014Q2

REPORT INFORMATION
  Report Type: Spontaneous
  Country: JP (occurrence: JP)
  Receive Date: 20140527
  Receipt Date: 20140527
  Transmission Date: 20141212
  Serious: Yes (Hospitalization)
  Sender: FDA-Public Use
  Company Number: JP-MYLANLABS-2014S1011659

PATIENT
  Age: 26 Year
  Sex: Female

DRUGS (7)
  1. PREDNISOLONE [Suspect]
     Indication: SYSTEMIC LUPUS ERYTHEMATOSUS
     Dosage: 30MG/DAY; THEN TAPERED
     Route: 065
  2. PREDNISOLONE [Suspect]
     Indication: SYSTEMIC LUPUS ERYTHEMATOSUS
     Dosage: INCREASED TO 50MG/DAY AND THEN TAPERED
     Route: 065
  3. PREDNISOLONE [Suspect]
     Indication: SYSTEMIC LUPUS ERYTHEMATOSUS
     Dosage: AGAIN INCREASED TO 50MG/DAY AND THEN TAPERED
     Route: 065
  4. CICLOSPORIN [Suspect]
     Indication: SYSTEMIC LUPUS ERYTHEMATOSUS
     Route: 065
  5. CICLOSPORIN [Suspect]
     Indication: OFF LABEL USE
     Route: 065
  6. CYCLOPHOSPHAMIDE [Suspect]
     Indication: SYSTEMIC LUPUS ERYTHEMATOSUS
     Dosage: TWO COURSES; 500MG/4 WEEKS
     Route: 042
  7. CYCLOPHOSPHAMIDE [Suspect]
     Indication: SYSTEMIC LUPUS ERYTHEMATOSUS
     Route: 042

REACTIONS (3)
  - Alveolar proteinosis [Recovering/Resolving]
  - Adverse reaction [Recovering/Resolving]
  - Bronchopulmonary aspergillosis [Recovering/Resolving]
